FAERS Safety Report 7503861-2 (Version None)
Quarter: 2011Q2

REPORT INFORMATION
  Report Type: 
  Country: None (occurrence: None)
  Receive Date: 20110518
  Receipt Date: 20110503
  Transmission Date: 20111010
  Serious: Yes (Disabling)
  Sender: FDA-Public Use
  Company Number: 2010-3833

PATIENT
  Age: 61 Year
  Sex: Female

DRUGS (1)
  1. AZZALURE (BOTULINUM TOXIN TYPE A) (BOTULINUM TOXIN TYPE A) [Suspect]
     Indication: SKIN WRINKLING
     Dosage: 50 UNITS (50 UNITS,SINCLE CYCLE), INTRAMUSCULAR
     Route: 030
     Dates: start: 20100504, end: 20100504

REACTIONS (2)
  - PRODUCT QUALITY ISSUE [None]
  - PERIORBITAL OEDEMA [None]
